FAERS Safety Report 7532571-0 (Version None)
Quarter: 2011Q2

REPORT INFORMATION
  Report Type: 
  Country: None (occurrence: None)
  Receive Date: 20110607
  Receipt Date: 20110607
  Transmission Date: 20111010
  Serious: Yes (Other)
  Sender: FDA-Public Use
  Company Number: None

PATIENT
  Age: 46 Year
  Sex: Male
  Weight: 107.9561 kg

DRUGS (1)
  1. RAPAFLO [Suspect]
     Indication: PROSTATITIS
     Dosage: 8MG DAILY PO
     Route: 048
     Dates: start: 20110415, end: 20110517

REACTIONS (1)
  - TACHYCARDIA [None]
